FAERS Safety Report 5381276-3 (Version None)
Quarter: 2007Q3

REPORT INFORMATION
  Report Type: 
  Country: None (occurrence: None)
  Receive Date: 20070702
  Receipt Date: 20070326
  Transmission Date: 20080115
  Serious: Yes (Other)
  Sender: FDA-Public Use
  Company Number: SPV1-2007-00675

PATIENT
  Age: 39 Year
  Sex: Male

DRUGS (14)
  1. PENTASA [Suspect]
     Indication: COLITIS ULCERATIVE
     Dosage: ORAL; 500 MG 3X'S DAILY; 250 3X'S DAILY; 250 M X2.500MG X1; 1250 MG DAILY; 1500 MG DAILY; 2000 MG DA
     Route: 048
     Dates: start: 20061005, end: 20061018
  2. PENTASA [Suspect]
     Indication: COLITIS ULCERATIVE
     Dosage: ORAL; 500 MG 3X'S DAILY; 250 3X'S DAILY; 250 M X2.500MG X1; 1250 MG DAILY; 1500 MG DAILY; 2000 MG DA
     Route: 048
     Dates: start: 20061213, end: 20061219
  3. PENTASA [Suspect]
     Indication: COLITIS ULCERATIVE
     Dosage: ORAL; 500 MG 3X'S DAILY; 250 3X'S DAILY; 250 M X2.500MG X1; 1250 MG DAILY; 1500 MG DAILY; 2000 MG DA
     Route: 048
     Dates: start: 20070117, end: 20070208
  4. PENTASA [Suspect]
     Indication: COLITIS ULCERATIVE
     Dosage: ORAL; 500 MG 3X'S DAILY; 250 3X'S DAILY; 250 M X2.500MG X1; 1250 MG DAILY; 1500 MG DAILY; 2000 MG DA
     Route: 048
     Dates: start: 20070209, end: 20070215
  5. PENTASA [Suspect]
     Indication: COLITIS ULCERATIVE
     Dosage: ORAL; 500 MG 3X'S DAILY; 250 3X'S DAILY; 250 M X2.500MG X1; 1250 MG DAILY; 1500 MG DAILY; 2000 MG DA
     Route: 048
     Dates: start: 20070216, end: 20070222
  6. PENTASA [Suspect]
     Indication: COLITIS ULCERATIVE
     Dosage: ORAL; 500 MG 3X'S DAILY; 250 3X'S DAILY; 250 M X2.500MG X1; 1250 MG DAILY; 1500 MG DAILY; 2000 MG DA
     Route: 048
     Dates: start: 20070223, end: 20070311
  7. PENTASA [Suspect]
     Indication: COLITIS ULCERATIVE
     Dosage: ORAL; 500 MG 3X'S DAILY; 250 3X'S DAILY; 250 M X2.500MG X1; 1250 MG DAILY; 1500 MG DAILY; 2000 MG DA
     Route: 048
     Dates: start: 20070312
  8. PENTASA [Suspect]
     Dosage: 1000 MG DAILY, RECTAL
     Route: 054
     Dates: start: 20070129
  9. PREDNISOLONE [Suspect]
     Dosage: 30 MG DAILY, ORAL; 20 MG DAILY; 15 MG DAILY
     Route: 048
     Dates: start: 20061107, end: 20070129
  10. PREDNISOLONE [Suspect]
     Dosage: 30 MG DAILY, ORAL; 20 MG DAILY; 15 MG DAILY
     Route: 048
     Dates: start: 20070130, end: 20070213
  11. PREDNISOLONE [Suspect]
     Dosage: 30 MG DAILY, ORAL; 20 MG DAILY; 15 MG DAILY
     Route: 048
     Dates: start: 20070214, end: 20070308
  12. ETIZOLAM [Concomitant]
  13. FAMOTIDINE [Concomitant]
  14. INSULIN HUMAN [Concomitant]

REACTIONS (1)
  - LIVER DISORDER [None]
